FAERS Safety Report 11649723 (Version 1)
Quarter: 2015Q4

REPORT INFORMATION
  Report Type: Spontaneous
  Country: US (occurrence: US)
  Receive Date: 20151021
  Receipt Date: 20151021
  Transmission Date: 20160304
  Serious: Yes (Other)
  Sender: FDA-Public Use
  Company Number: US-NPS_PHARMACEUTICALS-001945

PATIENT
  Age: 46 Year
  Sex: Female

DRUGS (7)
  1. CALCITRIOL. [Concomitant]
     Active Substance: CALCITRIOL
     Indication: BLOOD CALCIUM DECREASED
     Dosage: [DF]
  2. CALCIUM [Concomitant]
     Active Substance: CALCIUM
     Indication: BLOOD CALCIUM DECREASED
     Dosage: [DF]
  3. INFUSION [Concomitant]
     Active Substance: UNSPECIFIED INGREDIENT
     Indication: ELECTROLYTE IMBALANCE
     Dosage: [DF]
  4. THYROID MEDICATION [Concomitant]
     Active Substance: UNSPECIFIED INGREDIENT
     Indication: THYROID DISORDER
     Dosage: [DF]
  5. NATPARA (PARATHYROID HORMONE) [Suspect]
     Active Substance: PARATHYROID HORMONE
     Route: 058
     Dates: start: 20150817
  6. NATPARA (PARATHYROID HORMONE) [Suspect]
     Active Substance: PARATHYROID HORMONE
     Indication: HYPOPARATHYROIDISM
     Route: 058
     Dates: start: 20150504, end: 20150505
  7. NATPARA (PARATHYROID HORMONE) [Suspect]
     Active Substance: PARATHYROID HORMONE
     Route: 058
     Dates: start: 201504, end: 2015

REACTIONS (13)
  - Blood calcium abnormal [Recovered/Resolved]
  - Abdominal pain upper [Recovered/Resolved]
  - Medication monitoring error [Recovered/Resolved]
  - Presyncope [Recovered/Resolved]
  - Therapy change [Recovering/Resolving]
  - Dizziness [Recovered/Resolved]
  - Hypotension [Recovered/Resolved]
  - Product distribution issue [Recovered/Resolved]
  - Muscle twitching [Recovered/Resolved]
  - Blood calcium increased [Recovered/Resolved]
  - Pollakiuria [Recovered/Resolved]
  - Blood thyroid stimulating hormone increased [Recovered/Resolved]
  - Hypokalaemia [Recovered/Resolved]

NARRATIVE: CASE EVENT DATE: 2015
